FAERS Safety Report 5023230-7 (Version None)
Quarter: 2006Q2

REPORT INFORMATION
  Report Type: 
  Country: None (occurrence: None)
  Receive Date: 20060428
  Receipt Date: 20060131
  Transmission Date: 20061013
  Serious: No
  Sender: FDA-Public Use
  Company Number: 012106

PATIENT
  Age: 61 Year
  Sex: Male

DRUGS (15)
  1. PRIALT [Suspect]
     Indication: PAIN
     Dosage: 0.05 UG, ONCE/HOUR, INTRATHECAL
     Route: 037
     Dates: start: 20060126
  2. ASPIRIN [Concomitant]
  3. BACLOFEN [Concomitant]
  4. DULCOLAX [Concomitant]
  5. EFFEXOR XR [Concomitant]
  6. LASIX [Concomitant]
  7. VICODIN [Concomitant]
  8. LISINOPRIL (LISINIPRIL) [Concomitant]
  9. LOVASTATIN [Concomitant]
  10. OXYCONTIN [Concomitant]
  11. POTASSIUM CHLORIDE [Concomitant]
  12. SALSALATE (SALSALATE) [Concomitant]
  13. SENNTAB (SENNA ALEXANDRINA LEAF) [Concomitant]
  14. TESTOSTERONE [Concomitant]
  15. MVI (VITAMINS NOS) [Concomitant]

REACTIONS (5)
  - ARTHRALGIA [None]
  - DIFFICULTY IN WALKING [None]
  - INSOMNIA [None]
  - MALAISE [None]
  - SLEEP APNOEA SYNDROME [None]
